FAERS Safety Report 5711857-6 (Version None)
Quarter: 2008Q2

REPORT INFORMATION
  Report Type: 
  Country: None (occurrence: None)
  Receive Date: 20080421
  Receipt Date: 20080417
  Transmission Date: 20081010
  Serious: Yes (Other)
  Sender: FDA-Public Use
  Company Number: US-BOEHRINGER INGELHEIM GMBH, GERMANY-2008-BP-03890BP

PATIENT
  Age: 60 Year
  Sex: Female

DRUGS (4)
  1. SPIRIVA [Suspect]
     Indication: CHRONIC OBSTRUCTIVE PULMONARY DISEASE
     Route: 055
     Dates: start: 20050301
  2. PULMICORT [Concomitant]
     Indication: CHRONIC OBSTRUCTIVE PULMONARY DISEASE
     Route: 055
     Dates: start: 20080201
  3. EVISTA [Concomitant]
     Indication: OSTEOPOROSIS
  4. ASPIRIN [Concomitant]
     Indication: PAIN IN EXTREMITY
     Route: 048
     Dates: start: 20080226, end: 20080309

REACTIONS (10)
  - BLISTER [None]
  - DRUG INEFFECTIVE [None]
  - EPISTAXIS [None]
  - FEELING COLD [None]
  - MALAISE [None]
  - MYOCARDIAL INFARCTION [None]
  - PAIN IN EXTREMITY [None]
  - PYREXIA [None]
  - RASH PRURITIC [None]
  - SCAB [None]
